FAERS Safety Report 23466448 (Version 1)
Quarter: 2024Q1

REPORT INFORMATION
  Report Type: Spontaneous
  Country: US (occurrence: None)
  Receive Date: 20240131
  Receipt Date: 20240131
  Transmission Date: 20240410
  Serious: Yes (Life-Threatening, Hospitalization)
  Sender: FDA-Public Use
  Company Number: None

PATIENT
  Age: 11 Year
  Sex: Male
  Weight: 63 kg

DRUGS (1)
  1. SKYTROFA [Suspect]
     Active Substance: LONAPEGSOMATROPIN-TCGD
     Indication: Growth hormone deficiency
     Dosage: 11 MG WEEKLY SUBCUTANEOUS?
     Route: 058
     Dates: start: 20220202, end: 20220629

REACTIONS (5)
  - Nausea [None]
  - Flushing [None]
  - Rash [None]
  - Anaphylactic shock [None]
  - Mast cell activation syndrome [None]

NARRATIVE: CASE EVENT DATE: 20230304
